FAERS Safety Report 4705235-6 (Version None)
Quarter: 2005Q3

REPORT INFORMATION
  Report Type: 
  Country: None (occurrence: None)
  Receive Date: 20050701
  Receipt Date: 20050617
  Transmission Date: 20060218
  Serious: Yes (Hospitalization)
  Sender: FDA-Public Use
  Company Number: PHHO2005BE09601

PATIENT
  Age: 54 Year
  Sex: Male
  Weight: 104 kg

DRUGS (1)
  1. CGP 57148B [Suspect]
     Indication: HYPEREOSINOPHILIC SYNDROME
     Dosage: 100MG EVERY TWO DAYS
     Route: 048
     Dates: start: 20030426

REACTIONS (3)
  - MUSCLE INJURY [None]
  - OEDEMA [None]
  - PAIN IN EXTREMITY [None]
